FAERS Safety Report 6525979-3 (Version None)
Quarter: 2010Q1

REPORT INFORMATION
  Report Type: 
  Country: None (occurrence: None)
  Receive Date: 20100104
  Receipt Date: 20091223
  Transmission Date: 20100710
  Serious: Yes (Other)
  Sender: FDA-Public Use
  Company Number: ES-WYE-H12413009

PATIENT
  Sex: Male
  Weight: 84 kg

DRUGS (6)
  1. REFACTO [Suspect]
     Indication: FACTOR VIII DEFICIENCY
     Route: 042
     Dates: start: 20091001, end: 20091117
  2. REFACTO [Suspect]
     Dates: start: 20091211
  3. TENOFOVIR DISOPROXIL FUMARATE [Concomitant]
     Indication: VIRAL INFECTION
     Dosage: NOT PROVIDED
     Route: 065
  4. LOPINAVIR AND RITONAVIR [Concomitant]
     Indication: VIRAL INFECTION
     Dosage: NOT PROVIDED
     Route: 065
  5. PANTOPRAZOLE [Concomitant]
     Dosage: NOT PROVIDED
     Route: 065
  6. ABACAVIR [Concomitant]
     Indication: VIRAL INFECTION
     Dosage: NOT PROVIDED
     Route: 065

REACTIONS (1)
  - FACTOR VIII INHIBITION [None]
